FAERS Safety Report 9395067 (Version 2)
Quarter: 2013Q4

REPORT INFORMATION
  Report Type: Spontaneous
  Country: GB (occurrence: GB)
  Receive Date: 20130711
  Receipt Date: 20131105
  Transmission Date: 20140711
  Serious: Yes (Death, Other)
  Sender: FDA-Public Use
  Company Number: GB-B.I. PHARMACEUTICALS,INC./RIDGEFIELD-2013-UK-01377UK

PATIENT
  Age: 83 Year
  Sex: Female
  Weight: 70 kg

DRUGS (14)
  1. PRADAXA [Suspect]
     Indication: ATRIAL FIBRILLATION
     Dosage: 220 MG
     Route: 048
     Dates: start: 20130130, end: 20130225
  2. BISOPROLOL [Concomitant]
     Indication: ATRIAL FIBRILLATION
     Dosage: 2.5 MG
     Route: 048
  3. CALCICHEW [Concomitant]
  4. DIGOXIN [Concomitant]
     Indication: ATRIAL FIBRILLATION
     Dosage: 62.5 MG
     Route: 048
  5. BUCCASTEM [Concomitant]
  6. DERMOL [Concomitant]
  7. DOCUSATE [Concomitant]
     Dosage: 300 MG
  8. ISOPROPYL MYRISTATE [Concomitant]
  9. LATANOPROST [Concomitant]
  10. PARACETAMOL [Concomitant]
  11. PARAFFIN LIQUID [Concomitant]
  12. SENNA [Concomitant]
     Dosage: 15 MG
  13. WARFARIN [Concomitant]
     Indication: CEREBROVASCULAR ACCIDENT PROPHYLAXIS
     Dates: end: 20130116
  14. BRINZOLAMIDE [Concomitant]

REACTIONS (1)
  - Drug-induced liver injury [Fatal]
